FAERS Safety Report 19427459 (Version 1)
Quarter: 2021Q2

REPORT INFORMATION
  Report Type: Spontaneous
  Country: US (occurrence: US)
  Receive Date: 20210616
  Receipt Date: 20210616
  Transmission Date: 20210717
  Serious: Yes (Hospitalization)
  Sender: FDA-Public Use
  Company Number: None

PATIENT
  Age: 79 Year
  Sex: Male
  Weight: 73.66 kg

DRUGS (2)
  1. CAPECITABINE 150 MG TABLET [Suspect]
     Active Substance: CAPECITABINE
     Indication: APPENDIX CANCER
     Dosage: ?          OTHER DOSE:2 TAB;?
     Route: 048
     Dates: start: 20210407
  2. CAPECITABINE 500 MG TABLET [Suspect]
     Active Substance: CAPECITABINE
     Indication: APPENDIX CANCER
     Dosage: ?          OTHER DOSE:3 TAB;?
     Route: 048
     Dates: start: 20210407

REACTIONS (1)
  - Diarrhoea [None]
